FAERS Safety Report 14013898 (Version 2)
Quarter: 2017Q4

REPORT INFORMATION
  Report Type: Spontaneous
  Country: US (occurrence: US)
  Receive Date: 20170926
  Receipt Date: 20171124
  Transmission Date: 20180321
  Serious: Yes (Other)
  Sender: FDA-Public Use
  Company Number: US-ELI_LILLY_AND_COMPANY-US201709008249

PATIENT
  Age: 42 Year
  Sex: Male
  Weight: 95 kg

DRUGS (1)
  1. TALTZ [Suspect]
     Active Substance: IXEKIZUMAB
     Indication: PSORIASIS
     Dosage: 80MG TWICE, UNKNOWN
     Route: 058

REACTIONS (7)
  - Pyrexia [Unknown]
  - Lymphocytosis [Unknown]
  - Urticaria [Unknown]
  - Serum sickness [Recovered/Resolved]
  - Haematuria [Unknown]
  - Fatigue [Unknown]
  - Proteinuria [Unknown]
